FAERS Safety Report 9470564 (Version 2)
Quarter: 2013Q3

REPORT INFORMATION
  Report Type: Spontaneous
  Country: PE (occurrence: PE)
  Receive Date: 20130822
  Receipt Date: 20130903
  Transmission Date: 20140515
  Serious: Yes (Other)
  Sender: FDA-Public Use
  Company Number: PE-PFIZER INC-2013240250

PATIENT
  Age: 77 Year
  Sex: Female

DRUGS (4)
  1. LYRICA [Suspect]
     Indication: FIBROMYALGIA
     Dosage: 150 MG, UNK
     Route: 048
     Dates: end: 20130816
  2. LYRICA [Suspect]
     Dosage: 150 MG, UNK
     Route: 048
     Dates: start: 20130818
  3. CELEBREX [Concomitant]
     Dosage: UNK
     Route: 048
     Dates: end: 20130816
  4. NEURONTIN [Concomitant]
     Dosage: UNK
     Route: 048
     Dates: end: 20130816

REACTIONS (1)
  - Gastrointestinal disorder [Recovered/Resolved]
